FAERS Safety Report 7880002-3 (Version None)
Quarter: 2011Q4

REPORT INFORMATION
  Report Type: 
  Country: None (occurrence: None)
  Receive Date: 20111101
  Receipt Date: 20111026
  Transmission Date: 20120403
  Serious: Yes (Other)
  Sender: FDA-Public Use
  Company Number: AU-ROCHE-1007591

PATIENT
  Age: 72 Year
  Sex: Male

DRUGS (2)
  1. NAPROSYN [Suspect]
     Indication: PRODUCT USED FOR UNKNOWN INDICATION
     Route: 065
  2. AVAPRO [Suspect]
     Indication: HYPOTENSION
     Route: 065

REACTIONS (5)
  - PROSTATIC DISORDER [None]
  - ARTHROPATHY [None]
  - SKIN CANCER [None]
  - BACK PAIN [None]
  - BLOOD SODIUM DECREASED [None]
